FAERS Safety Report 7930094-8 (Version None)
Quarter: 2011Q4

REPORT INFORMATION
  Report Type: 
  Country: None (occurrence: None)
  Receive Date: 20111117
  Receipt Date: 20111102
  Transmission Date: 20120403
  Serious: Yes (Death)
  Sender: FDA-Public Use
  Company Number: UTC-011949

PATIENT
  Age: 76 Year
  Sex: Male
  Weight: 93.18 kg

DRUGS (4)
  1. REMODULIN [Suspect]
     Indication: COR PULMONALE CHRONIC
     Dosage: 46.08 UG/KG (0.032 UG/KG, 1 IN 1 MIN), SUBCUTANEOUS
     Route: 058
     Dates: start: 20110316
  2. ASPIRIN [Concomitant]
  3. REVATIO [Concomitant]
  4. O2 (OXYGEN) [Concomitant]

REACTIONS (1)
  - DEATH [None]
